FAERS Safety Report 14777081 (Version 1)
Quarter: 2018Q2

REPORT INFORMATION
  Report Type: Spontaneous
  Country: FR (occurrence: FR)
  Receive Date: 20180419
  Receipt Date: 20180419
  Transmission Date: 20180711
  Serious: Yes (Hospitalization)
  Sender: FDA-Public Use
  Company Number: FR-MERCK KGAA-2046008

PATIENT
  Age: 62 Year
  Sex: Male

DRUGS (1)
  1. NOVOTHYROX [Suspect]
     Active Substance: LEVOTHYROXINE SODIUM
     Indication: PRODUCT USED FOR UNKNOWN INDICATION
     Dates: start: 201706

REACTIONS (10)
  - Apathy [None]
  - Blood pressure abnormal [None]
  - Mood swings [None]
  - Fatigue [None]
  - Insomnia [None]
  - Irritability [None]
  - Depression [None]
  - Muscle spasms [None]
  - Bladder transitional cell carcinoma [None]
  - Diabetes mellitus inadequate control [None]

NARRATIVE: CASE EVENT DATE: 201706
